FAERS Safety Report 24244405 (Version 1)
Quarter: 2024Q3

REPORT INFORMATION
  Report Type: Spontaneous
  Country: US (occurrence: None)
  Receive Date: 20240822
  Receipt Date: 20240822
  Transmission Date: 20241016
  Serious: No
  Sender: Public
  Company Number: None

PATIENT
  Age: 28 Year
  Sex: Male

DRUGS (2)
  1. GLIMEPIRIDE\METFORMIN [Suspect]
     Active Substance: GLIMEPIRIDE\METFORMIN
  2. INSULIN HUMAN [Suspect]
     Active Substance: INSULIN HUMAN

REACTIONS (5)
  - Pain in extremity [None]
  - Joint stiffness [None]
  - Paraesthesia [None]
  - Product packaging quantity issue [None]
  - Accidental overdose [None]
